FAERS Safety Report 8174596 (Version 4)
Quarter: 2015Q1

REPORT INFORMATION
  Report Type: Spontaneous
  Country: US (occurrence: US)
  Receive Date: 20111010
  Receipt Date: 20150122
  Transmission Date: 20150721
  Serious: Yes (Other)
  Sender: FDA-Public Use
  Company Number: US-ASTRAZENECA-2011SE58820

PATIENT
  Age: 49 Year
  Sex: Male
  Weight: 83.9 kg

DRUGS (4)
  1. NEXIUM [Suspect]
     Active Substance: ESOMEPRAZOLE MAGNESIUM
     Indication: FLATULENCE
     Route: 048
     Dates: end: 201405
  2. NEXIUM [Suspect]
     Active Substance: ESOMEPRAZOLE MAGNESIUM
     Indication: GASTROOESOPHAGEAL REFLUX DISEASE
     Route: 048
     Dates: end: 201405
  3. PRILOSEC [Suspect]
     Active Substance: OMEPRAZOLE MAGNESIUM
     Route: 048
  4. NEXIUM [Suspect]
     Active Substance: ESOMEPRAZOLE MAGNESIUM
     Indication: DYSPEPSIA
     Route: 048
     Dates: end: 201405

REACTIONS (17)
  - Injury [Unknown]
  - Chest pain [Not Recovered/Not Resolved]
  - Cough [Unknown]
  - Malaise [Unknown]
  - Discomfort [Not Recovered/Not Resolved]
  - Spinal osteoarthritis [Unknown]
  - Condition aggravated [Not Recovered/Not Resolved]
  - Accident [Unknown]
  - Limb injury [Unknown]
  - Throat irritation [Unknown]
  - Drug dose omission [Unknown]
  - Craniocerebral injury [Not Recovered/Not Resolved]
  - Nervous system disorder [Not Recovered/Not Resolved]
  - Off label use [Unknown]
  - Dysphagia [Unknown]
  - Adverse event [Unknown]
  - Drug ineffective [Unknown]
